FAERS Safety Report 6786549-5 (Version None)
Quarter: 2010Q2

REPORT INFORMATION
  Report Type: 
  Country: None (occurrence: None)
  Receive Date: 20100623
  Receipt Date: 20100621
  Transmission Date: 20101027
  Serious: Yes (Other)
  Sender: FDA-Public Use
  Company Number: CN-MERCK-1006CHN00021

PATIENT
  Age: 102 Month
  Sex: Female

DRUGS (2)
  1. SINGULAIR [Suspect]
     Indication: ASTHMA
     Route: 048
     Dates: start: 20100501, end: 20100501
  2. FLUTICASONE PROPIONATE AND SALMETEROL XINAFOATE [Concomitant]
     Indication: ASTHMA
     Route: 048
     Dates: start: 20100501

REACTIONS (3)
  - ANGER [None]
  - INTENTIONAL SELF-INJURY [None]
  - SCHOOL REFUSAL [None]
